FAERS Safety Report 17284877 (Version 3)
Quarter: 2020Q2

REPORT INFORMATION
  Report Type: Report from Study
  Country: US (occurrence: US)
  Receive Date: 20200117
  Receipt Date: 20200515
  Transmission Date: 20200713
  Serious: Yes (Hospitalization)
  Sender: FDA-Public Use
  Company Number: US-ACTELION-A-US2019-187143

PATIENT
  Sex: Female

DRUGS (3)
  1. OFEV [Concomitant]
     Active Substance: NINTEDANIB
  2. DILTIAZEM. [Concomitant]
     Active Substance: DILTIAZEM
  3. OPSUMIT [Suspect]
     Active Substance: MACITENTAN
     Indication: PULMONARY HYPERTENSION
     Dosage: 10 MG, QD
     Route: 048
     Dates: start: 20180605

REACTIONS (7)
  - Respiratory distress [Unknown]
  - Product dose omission [Unknown]
  - Pain [Unknown]
  - Hospitalisation [Unknown]
  - Memory impairment [Unknown]
  - Chills [Unknown]
  - Pyrexia [Unknown]
